FAERS Safety Report 10652513 (Version 1)
Quarter: 2014Q4

REPORT INFORMATION
  Report Type: Spontaneous
  Country: FR (occurrence: FR)
  Receive Date: 20141215
  Receipt Date: 20141215
  Transmission Date: 20150529
  Serious: Yes (Hospitalization)
  Sender: FDA-Public Use
  Company Number: FR-PERRIGO-14FR011888

PATIENT
  Age: 76 Year
  Sex: Male

DRUGS (1)
  1. BROMOCRIPTINE MESYLATE USP RX 2.5 MG 2P6 [Suspect]
     Active Substance: BROMOCRIPTINE MESYLATE
     Indication: PARKINSON^S DISEASE
     Dosage: 30 MG, QD
     Route: 048

REACTIONS (5)
  - Tricuspid valve incompetence [Unknown]
  - Dyspnoea [Recovering/Resolving]
  - Mitral valve incompetence [Unknown]
  - Cardiac failure congestive [Recovering/Resolving]
  - Aortic valve incompetence [Unknown]
